FAERS Safety Report 4760095-2 (Version None)
Quarter: 2005Q3

REPORT INFORMATION
  Report Type: 
  Country: None (occurrence: None)
  Receive Date: 20050902
  Receipt Date: 20050307
  Transmission Date: 20060218
  Serious: No
  Sender: FDA-Public Use
  Company Number: US-GLAXOSMITHKLINE-A0548652A

PATIENT
  Age: 67 Year
  Sex: Female

DRUGS (9)
  1. REQUIP [Suspect]
     Indication: RESTLESS LEGS SYNDROME
     Dosage: 3MG THREE TIMES PER DAY
     Route: 048
  2. ELAVIL [Concomitant]
  3. LASIX [Concomitant]
  4. ACCUPRIL [Concomitant]
  5. K-DUR 10 [Concomitant]
  6. B-6 [Concomitant]
  7. B-12 [Concomitant]
  8. PROTONIX [Concomitant]
  9. BENADRYL [Concomitant]

REACTIONS (3)
  - DRUG EFFECT DECREASED [None]
  - NAUSEA [None]
  - VOMITING [None]
